FAERS Safety Report 13658577 (Version 2)
Quarter: 2017Q4

REPORT INFORMATION
  Report Type: Spontaneous
  Country: AU (occurrence: AU)
  Receive Date: 20170616
  Receipt Date: 20171116
  Transmission Date: 20180320
  Serious: Yes (Other)
  Sender: FDA-Public Use
  Company Number: AU-GLENMARK PHARMACEUTICALS-2017GMK027878

PATIENT
  Age: 59 Year
  Sex: Male

DRUGS (7)
  1. FLUDROCORTISONE [Concomitant]
     Active Substance: FLUDROCORTISONE
     Indication: ORTHOSTATIC HYPOTENSION
     Dosage: UNK
     Route: 065
  2. VENLAFAXINE [Suspect]
     Active Substance: VENLAFAXINE HYDROCHLORIDE
     Dosage: 150 MG, OD (SLOW-RELEASE)
     Route: 048
  3. PRAMIPEXOLE DIHYDROCHLORIDE. [Suspect]
     Active Substance: PRAMIPEXOLE DIHYDROCHLORIDE
     Indication: SUICIDAL IDEATION
     Dosage: 3 MG, UNK
     Route: 048
  4. MIRTAZAPINE. [Suspect]
     Active Substance: MIRTAZAPINE
     Dosage: 15 MG, OD
     Route: 048
  5. MIRTAZAPINE. [Suspect]
     Active Substance: MIRTAZAPINE
     Indication: SUICIDAL IDEATION
     Dosage: 360 MG, UNK
     Route: 048
  6. PRAMIPEXOLE DIHYDROCHLORIDE. [Suspect]
     Active Substance: PRAMIPEXOLE DIHYDROCHLORIDE
     Indication: RESTLESS LEGS SYNDROME
     Dosage: 0.125 MG, OD
     Route: 048
  7. VENLAFAXINE [Suspect]
     Active Substance: VENLAFAXINE HYDROCHLORIDE
     Indication: SUICIDAL IDEATION
     Dosage: 2250 MG, UNK
     Route: 048

REACTIONS (15)
  - Hypervigilance [Recovering/Resolving]
  - Agitation [Recovered/Resolved]
  - Feeling jittery [Recovering/Resolving]
  - Blood lactic acid increased [Recovering/Resolving]
  - Heart rate increased [Recovering/Resolving]
  - Speech disorder [Recovering/Resolving]
  - Dizziness [Recovering/Resolving]
  - Toxicity to various agents [Unknown]
  - Dysuria [Recovered/Resolved]
  - Disturbance in attention [Recovering/Resolving]
  - Urinary retention [Recovered/Resolved]
  - Myoclonus [Recovering/Resolving]
  - Hallucination, visual [Recovered/Resolved]
  - Overdose [Unknown]
  - Ataxia [Recovering/Resolving]
